FAERS Safety Report 18190213 (Version 1)
Quarter: 2020Q3

REPORT INFORMATION
  Report Type: Spontaneous
  Country: US (occurrence: US)
  Receive Date: 20200824
  Receipt Date: 20200824
  Transmission Date: 20201103
  Serious: Yes (Death)
  Sender: FDA-Public Use
  Company Number: US-VIFOR (INTERNATIONAL) INC.-VIT-2020-08818

PATIENT
  Age: 78 Year
  Sex: Male

DRUGS (10)
  1. HYDRALAZINE [Concomitant]
     Active Substance: HYDRALAZINE HYDROCHLORIDE
  2. NORVASC [Concomitant]
     Active Substance: AMLODIPINE BESYLATE
  3. FAMOTIDINE. [Concomitant]
     Active Substance: FAMOTIDINE
  4. RESTASIS [Concomitant]
     Active Substance: CYCLOSPORINE
  5. CALCIUM ACETATE. [Concomitant]
     Active Substance: CALCIUM ACETATE
  6. VELTASSA [Suspect]
     Active Substance: PATIROMER
     Indication: BLOOD POTASSIUM INCREASED
     Route: 048
     Dates: start: 20190404
  7. CLONIDINE. [Concomitant]
     Active Substance: CLONIDINE
  8. HUMALOG [Concomitant]
     Active Substance: INSULIN LISPRO
  9. LASIX [Concomitant]
     Active Substance: FUROSEMIDE
  10. METOPROLOL. [Concomitant]
     Active Substance: METOPROLOL

REACTIONS (1)
  - Death [Fatal]

NARRATIVE: CASE EVENT DATE: 20200810
